FAERS Safety Report 6808781-4 (Version None)
Quarter: 2010Q2

REPORT INFORMATION
  Report Type: 
  Country: None (occurrence: None)
  Receive Date: 20100630
  Receipt Date: 20091020
  Transmission Date: 20101027
  Serious: No
  Sender: FDA-Public Use
  Company Number: US-PFIZER INC-2009262975

PATIENT
  Sex: Male
  Weight: 72.6 kg

DRUGS (4)
  1. VIAGRA [Suspect]
     Dosage: 50 MG, UNK
  2. PLAVIX [Concomitant]
  3. WARFARIN [Concomitant]
  4. SIMVASTATIN [Concomitant]

REACTIONS (2)
  - DRUG INEFFECTIVE [None]
  - EUPHORIC MOOD [None]
